FAERS Safety Report 9667950 (Version 2)
Quarter: 2013Q4

REPORT INFORMATION
  Report Type: Spontaneous
  Country: US (occurrence: None)
  Receive Date: 20131101
  Receipt Date: 20131127
  Transmission Date: 20140711
  Serious: Yes (Other)
  Sender: FDA-Public Use
  Company Number: 2013-US-002338

PATIENT
  Age: 55 Year
  Sex: Female

DRUGS (2)
  1. XYREM (SODIUM OXYBATE) ORAL SOLUTION, 500MG/ML [Suspect]
     Indication: NARCOLEPSY
     Dosage: 4 G, FIRST DOSE, ORAL
     Route: 048
     Dates: start: 201002, end: 2010
  2. XYREM (SODIUM OXYBATE) ORAL SOLUTION, 500MG/ML [Suspect]
     Indication: CATAPLEXY
     Dosage: 4 G, FIRST DOSE, ORAL
     Route: 048
     Dates: start: 201002, end: 2010

REACTIONS (2)
  - Femur fracture [None]
  - Enuresis [None]
